FAERS Safety Report 6304040-7 (Version None)
Quarter: 2009Q3

REPORT INFORMATION
  Report Type: 
  Country: None (occurrence: None)
  Receive Date: 20090810
  Receipt Date: 20090810
  Transmission Date: 20100115
  Serious: Yes (Hospitalization, Other)
  Sender: FDA-Public Use
  Company Number: None

PATIENT
  Age: 58 Year
  Sex: Female
  Weight: 132 kg

DRUGS (8)
  1. HEPARIN [Suspect]
     Indication: PULMONARY EMBOLISM
     Dosage: TITRATE PER PTT CONTINOUS INFUSION IV DRIP
     Route: 041
     Dates: start: 20090712, end: 20090716
  2. WARFARIN SODIUM [Suspect]
     Indication: PULMONARY EMBOLISM
     Dosage: 10-12 MG DAILY PO
     Route: 048
     Dates: start: 20090712, end: 20090715
  3. GEMFIBROZIL [Concomitant]
  4. FAMOTIDINE [Concomitant]
  5. KETOROLAC TROMETHAMINE [Concomitant]
  6. TRAMADOL [Concomitant]
  7. ACETAMINOPHEN [Concomitant]
  8. MORPHINE [Concomitant]

REACTIONS (1)
  - SUBDURAL HAEMATOMA [None]
